FAERS Safety Report 8078421-8 (Version None)
Quarter: 2012Q1

REPORT INFORMATION
  Report Type: 
  Country: None (occurrence: None)
  Receive Date: 20120127
  Receipt Date: 20110209
  Transmission Date: 20120608
  Serious: Yes (Hospitalization)
  Sender: FDA-Public Use
  Company Number: US-ABBOTT-10P-163-0664406-00

PATIENT
  Sex: Female
  Weight: 69.008 kg

DRUGS (9)
  1. FULOCINODINE [Concomitant]
     Indication: ECZEMA
  2. VALTREX GENERIC [Concomitant]
     Indication: PRODUCT USED FOR UNKNOWN INDICATION
  3. SULFAZINE [Concomitant]
     Indication: PRODUCT USED FOR UNKNOWN INDICATION
     Dosage: 500MG - THREE PILLS DAILY
  4. CLINDAMYCIN [Concomitant]
     Indication: PRODUCT USED FOR UNKNOWN INDICATION
     Dosage: ONE APPLICATION EVERY OTHER DAY
     Route: 067
  5. ALUBERTOL [Concomitant]
     Indication: PRODUCT USED FOR UNKNOWN INDICATION
  6. OMEPRAZOLE [Concomitant]
     Indication: PRODUCT USED FOR UNKNOWN INDICATION
  7. ADVAIR DISKUS 100/50 [Concomitant]
     Indication: PRODUCT USED FOR UNKNOWN INDICATION
     Dosage: 250-50, ONE PUFF ONCE DAILY
  8. HUMIRA [Suspect]
     Indication: CROHN'S DISEASE
     Dates: start: 20100301
  9. ORTHO [Concomitant]
     Indication: PRODUCT USED FOR UNKNOWN INDICATION
     Dosage: BIRTH CONTROL PATCH

REACTIONS (15)
  - INJECTION SITE HAEMORRHAGE [None]
  - LUNG NEOPLASM [None]
  - WEIGHT DECREASED [None]
  - COUGH [None]
  - DYSPNOEA [None]
  - ARTHRALGIA [None]
  - PNEUMONIA [None]
  - INJECTION SITE NODULE [None]
  - INJECTION SITE HAEMATOMA [None]
  - DECREASED APPETITE [None]
  - SPUTUM DISCOLOURED [None]
  - PAINFUL RESPIRATION [None]
  - MUSCULOSKELETAL PAIN [None]
  - FATIGUE [None]
  - NERVE INJURY [None]
